FAERS Safety Report 18985284 (Version 1)
Quarter: 2021Q1

REPORT INFORMATION
  Report Type: Other
  Country: US (occurrence: US)
  Receive Date: 20210309
  Receipt Date: 20210309
  Transmission Date: 20210420
  Serious: Yes (Other)
  Sender: FDA-Public Use
  Company Number: US-ROCHE-2784351

PATIENT
  Sex: Female

DRUGS (2)
  1. BEVACIZUMAB. [Suspect]
     Active Substance: BEVACIZUMAB
     Indication: NEOPLASM MALIGNANT
     Dosage: 10 MG/KG WAS GIVEN BY CONTINUOUS IV INFUSION OVER 90 MIN FOR THE FIRST INFUSION AND 30 MIN FOR SUBSE
     Route: 042
  2. PACLITAXEL ALBUMIN [Suspect]
     Active Substance: PACLITAXEL
     Indication: NEOPLASM MALIGNANT
     Dosage: 100 MG/M2 GIVEN BY INTRAVENOUS (IV) INFUSION OVER 30 MIN ON DAYS 1, 8, AND 15 OF A 28?DAY CYCLE
     Route: 042

REACTIONS (4)
  - Hyperkalaemia [Unknown]
  - Hypokalaemia [Unknown]
  - Overdose [Unknown]
  - Neutropenia [Unknown]
